FAERS Safety Report 6328754-8 (Version None)
Quarter: 2009Q3

REPORT INFORMATION
  Report Type: 
  Country: None (occurrence: None)
  Receive Date: 20090825
  Receipt Date: 20090825
  Transmission Date: 20100115
  Serious: Yes (Death)
  Sender: FDA-Public Use
  Company Number: None

PATIENT
  Sex: Male

DRUGS (6)
  1. REVLIMID [Suspect]
     Indication: MYELODYSPLASTIC SYNDROME
     Dosage: REVLIMID 5 MG DAILY ORAL
     Route: 048
     Dates: start: 20060609, end: 20071201
  2. REVLIMID [Suspect]
     Indication: MYELODYSPLASTIC SYNDROME
     Dosage: REVLIMID 5 MG DAILY ORAL
     Route: 048
     Dates: start: 20090122
  3. FENTANYL [Concomitant]
  4. MORPHINE [Concomitant]
  5. LORAZEPAM [Concomitant]
  6. DULCOLAX [Concomitant]

REACTIONS (2)
  - DISEASE PROGRESSION [None]
  - PLATELET COUNT DECREASED [None]
